FAERS Safety Report 12203526 (Version 2)
Quarter: 2016Q1

REPORT INFORMATION
  Report Type: Spontaneous
  Country: ES (occurrence: ES)
  Receive Date: 20160323
  Receipt Date: 20160328
  Transmission Date: 20160526
  Serious: Yes (Other)
  Sender: FDA-Public Use
  Company Number: ES-009507513-1603ESP008415

PATIENT
  Sex: Male

DRUGS (1)
  1. NASONEX [Suspect]
     Active Substance: MOMETASONE FUROATE
     Indication: TINNITUS
     Dosage: 50 MICROGRAM (ONE PUFF), ONCE; IN THE RIGHT EAR
     Route: 001
     Dates: start: 20160316, end: 20160316

REACTIONS (4)
  - Hemianaesthesia [Recovered/Resolved]
  - Hypoacusis [Recovered/Resolved]
  - Product use issue [Unknown]
  - Incorrect route of drug administration [Unknown]

NARRATIVE: CASE EVENT DATE: 20160316
